FAERS Safety Report 5961186-0 (Version None)
Quarter: 2008Q4

REPORT INFORMATION
  Report Type: 
  Country: None (occurrence: None)
  Receive Date: 20081119
  Receipt Date: 20081106
  Transmission Date: 20090506
  Serious: Yes (Hospitalization)
  Sender: FDA-Public Use
  Company Number: DSA_32607_2008

PATIENT
  Age: 38 Year
  Sex: Male

DRUGS (5)
  1. ENALAPRIL MALEATE [Suspect]
     Indication: CARDIAC FAILURE
     Dosage: (DF ORAL)
     Route: 048
     Dates: start: 20040901, end: 20070901
  2. ENALAPRIL MALEATE [Suspect]
     Indication: HYPERTENSION
     Dosage: (DF ORAL)
     Route: 048
     Dates: start: 20040901, end: 20070901
  3. AMLODIN [Concomitant]
  4. ASPIRIN [Concomitant]
  5. CARVEDILOL [Concomitant]

REACTIONS (2)
  - ANGIOEDEMA [None]
  - PNEUMONIA [None]
